FAERS Safety Report 17567017 (Version 3)
Quarter: 2020Q2

REPORT INFORMATION
  Report Type: Spontaneous
  Country: CA (occurrence: CA)
  Receive Date: 20200320
  Receipt Date: 20200611
  Transmission Date: 20200713
  Serious: Yes (Other)
  Sender: FDA-Public Use
  Company Number: CA-PFIZER INC-2019204997

PATIENT
  Age: 70 Year
  Sex: Male

DRUGS (19)
  1. XELJANZ [Suspect]
     Active Substance: TOFACITINIB CITRATE
     Dosage: 5 MG, 2X/DAY
     Route: 048
     Dates: start: 20190508, end: 201905
  2. GABAPENTIN ^PCD^ [Concomitant]
     Active Substance: GABAPENTIN
     Indication: NEURALGIA
     Dosage: 3 DF, DAILY (300 MG)
  3. GABAPENTIN ^PCD^ [Concomitant]
     Active Substance: GABAPENTIN
     Indication: BACK PAIN
  4. SPIRIVA COMBI [Concomitant]
     Active Substance: TIOTROPIUM BROMIDE
     Indication: ASTHMA
     Dosage: 2.5 UG, 2X/DAY (2 PUFFS)
     Route: 055
  5. TYLENOL WITH CODEINE [Concomitant]
     Active Substance: ACETAMINOPHEN\CODEINE PHOSPHATE
     Indication: PAIN
     Dosage: 3 DF, DAILY
     Dates: start: 2019
  6. FINASTERIDE. [Concomitant]
     Active Substance: FINASTERIDE
     Indication: DYSURIA
     Dosage: 1 DF, DAILY (5 MG)
     Route: 048
  7. TAMSULOSIN HYDROCHLORIDE. [Concomitant]
     Active Substance: TAMSULOSIN HYDROCHLORIDE
     Indication: DYSURIA
     Dosage: 1 DF, DAILY (400 UG)
     Route: 048
  8. SIMPONI [Concomitant]
     Active Substance: GOLIMUMAB
     Indication: COLITIS ULCERATIVE
     Dosage: 100 MG, (EVERY 14 DAYS)
  9. XELJANZ [Suspect]
     Active Substance: TOFACITINIB CITRATE
     Indication: COLITIS ULCERATIVE
     Dosage: 5 MG, 1X/DAY
     Route: 048
     Dates: start: 20190507, end: 20190508
  10. TYLENOL WITH CODEINE [Concomitant]
     Active Substance: ACETAMINOPHEN\CODEINE PHOSPHATE
     Indication: COLITIS ULCERATIVE
     Dosage: 2 DF, 2X/DAY
     Dates: end: 2019
  11. SYMBICORT [Concomitant]
     Active Substance: BUDESONIDE\FORMOTEROL FUMARATE DIHYDRATE
     Indication: ASTHMA
     Dosage: 200 UG, (2 PUFFS 2-3 TIMES DAILY (MAX 6/DAY) )
     Route: 055
  12. PERINDOPRIL [Concomitant]
     Active Substance: PERINDOPRIL
     Indication: HYPERTENSION
     Dosage: UNK, 3X/DAY (8 MB/2.5 MG 1/4 PILL TID (MAX 1 PILL DAILY)
     Route: 048
  13. METOPROLOL. [Concomitant]
     Active Substance: METOPROLOL
     Indication: HEART RATE
     Dosage: 1 DF, DAILY
     Route: 048
  14. ASA [Concomitant]
     Active Substance: ASPIRIN
     Dosage: UNK UNK, 2X/DAY
  15. CBD OIL [Concomitant]
     Active Substance: CANNABIDIOL\HERBALS
     Indication: BACK PAIN
     Dosage: UNK (VARIOUS DOSES)
     Dates: start: 201904
  16. XELJANZ [Suspect]
     Active Substance: TOFACITINIB CITRATE
     Dosage: 10 MG, 2X/DAY
     Route: 048
     Dates: start: 201905
  17. PENTASA [Concomitant]
     Active Substance: MESALAMINE
     Indication: COLITIS ULCERATIVE
     Dosage: 1 G, (2-3 PILLS) DAILY
     Route: 048
     Dates: start: 201809
  18. MOMETASONE [Concomitant]
     Active Substance: MOMETASONE
     Indication: SINUSITIS
     Dosage: 50 UG, UNK (50 UG, DAILY (2 PUFFS 2-3 TIMES DAILY)
     Route: 055
  19. CANNABIDIOL [Concomitant]
     Active Substance: CANNABIDIOL
     Indication: BACK PAIN
     Dosage: UNK ML, UNK (VARIOUS DOSES)
     Dates: start: 201904

REACTIONS (8)
  - Drug ineffective [Unknown]
  - Skin papilloma [Unknown]
  - Diarrhoea [Unknown]
  - Knee deformity [Unknown]
  - Balance disorder [Unknown]
  - Back pain [Unknown]
  - Arthralgia [Unknown]
  - Cough [Unknown]
